FAERS Safety Report 6565136-8 (Version None)
Quarter: 2010Q1

REPORT INFORMATION
  Report Type: 
  Country: None (occurrence: None)
  Receive Date: 20100201
  Receipt Date: 20100122
  Transmission Date: 20100710
  Serious: Yes (Other)
  Sender: FDA-Public Use
  Company Number: B0578043A

PATIENT
  Age: 26 Year
  Sex: Female

DRUGS (2)
  1. AUGMENTIN '125' [Suspect]
     Indication: PROPHYLAXIS
     Dosage: 2.2G PER DAY
     Route: 042
     Dates: start: 20090520, end: 20090520
  2. MANNIT [Concomitant]
     Indication: THERAPEUTIC PROCEDURE
     Route: 048

REACTIONS (5)
  - CRYSTALLURIA [None]
  - HAEMATURIA [None]
  - MEDICAL DEVICE COMPLICATION [None]
  - MEDICATION CRYSTALS IN URINE [None]
  - PRODUCT QUALITY ISSUE [None]
